FAERS Safety Report 8143697-5 (Version None)
Quarter: 2012Q1

REPORT INFORMATION
  Report Type: 
  Country: None (occurrence: None)
  Receive Date: 20120103
  Receipt Date: 20111007
  Transmission Date: 20120608
  Serious: No
  Sender: FDA-Public Use
  Company Number: AE-2011-002132

PATIENT
  Age: 47 Year
  Sex: Male

DRUGS (5)
  1. LAMOTRIGINE [Concomitant]
  2. INCIVEK [Suspect]
     Dosage: ORAL
     Route: 048
     Dates: start: 20111007
  3. PEGASYS [Concomitant]
  4. RIBAPAK (RIBAVIRIN) [Concomitant]
  5. METFORMIN HCL [Concomitant]

REACTIONS (2)
  - CHILLS [None]
  - HEADACHE [None]
